FAERS Safety Report 16689269 (Version 2)
Quarter: 2019Q3

REPORT INFORMATION
  Report Type: Spontaneous
  Country: KR (occurrence: KR)
  Receive Date: 20190809
  Receipt Date: 20190822
  Transmission Date: 20191004
  Serious: Yes (Death, Other)
  Sender: FDA-Public Use
  Company Number: KR-ASTRAZENECA-2019SF14158

PATIENT
  Sex: Female

DRUGS (1)
  1. OLAPARIB. [Suspect]
     Active Substance: OLAPARIB
     Route: 048

REACTIONS (8)
  - Therapy partial responder [Unknown]
  - Ovarian cancer recurrent [Unknown]
  - Anaemia [Unknown]
  - Mouth ulceration [Unknown]
  - Asthenia [Unknown]
  - Death [Fatal]
  - Nausea [Unknown]
  - Rash [Unknown]
